FAERS Safety Report 8498022-7 (Version None)
Quarter: 2012Q3

REPORT INFORMATION
  Report Type: 
  Country: None (occurrence: None)
  Receive Date: 20120709
  Receipt Date: 20120618
  Transmission Date: 20120928
  Serious: No
  Sender: FDA-Public Use
  Company Number: US-AMGEN-USASP2012036513

PATIENT
  Age: 54 Year
  Sex: Female

DRUGS (4)
  1. NIACIN [Concomitant]
     Dosage: 1 MG, UNK
  2. ENBREL [Suspect]
     Indication: ANKYLOSING SPONDYLITIS
     Dosage: 50 MG, QWK
     Dates: start: 20120524
  3. LEVOTHYROXINE SODIUM [Concomitant]
     Dosage: 1 MUG, UNK
  4. VITAMIN D [Concomitant]
     Dosage: 1 MUG, UNK

REACTIONS (3)
  - SKIN DISCOLOURATION [None]
  - INJECTION SITE ERYTHEMA [None]
  - RASH ERYTHEMATOUS [None]
